FAERS Safety Report 6171902-3 (Version None)
Quarter: 2009Q2

REPORT INFORMATION
  Report Type: 
  Country: None (occurrence: None)
  Receive Date: 20090429
  Receipt Date: 20090421
  Transmission Date: 20091009
  Serious: Yes (Other)
  Sender: FDA-Public Use
  Company Number: US-MERCK-0904USA02093

PATIENT
  Age: 51 Year
  Sex: Male
  Weight: 118 kg

DRUGS (9)
  1. ISENTRESS [Suspect]
     Route: 048
     Dates: start: 20080311
  2. PERCOCET [Concomitant]
     Route: 048
     Dates: start: 20060216
  3. TRUVADA [Concomitant]
     Route: 065
     Dates: start: 20080311
  4. LOPID [Concomitant]
     Route: 065
     Dates: start: 20080311
  5. ASPIRIN [Concomitant]
     Route: 065
     Dates: start: 20081023
  6. LISINOPRIL [Concomitant]
     Route: 065
     Dates: start: 20081023
  7. HUMALOG [Concomitant]
     Route: 065
     Dates: start: 20060117
  8. LANTUS [Concomitant]
     Route: 065
     Dates: start: 20060717
  9. INTELENCE [Concomitant]
     Route: 065
     Dates: start: 20080311

REACTIONS (1)
  - ANAL CANCER [None]
